FAERS Safety Report 4267635-0 (Version None)
Quarter: 2004Q1

REPORT INFORMATION
  Report Type: 
  Country: None (occurrence: None)
  Receive Date: 20040109
  Receipt Date: 20031103
  Transmission Date: 20041129
  Serious: No
  Sender: FDA-Public Use
  Company Number: US-GLAXOSMITHKLINE-A0432592A

PATIENT
  Sex: Male

DRUGS (2)
  1. WELLBUTRIN [Suspect]
     Indication: EX-SMOKER
  2. ZYBAN [Suspect]
     Indication: EX-SMOKER
     Dates: start: 20030101, end: 20030101

REACTIONS (2)
  - RASH [None]
  - URTICARIA [None]
